FAERS Safety Report 11528923 (Version 1)
Quarter: 2015Q3

REPORT INFORMATION
  Report Type: Spontaneous
  Country: US (occurrence: None)
  Receive Date: 20150918
  Receipt Date: 20150918
  Transmission Date: 20151125
  Serious: Yes (Hospitalization, Disabling)
  Sender: FDA-Public Use
  Company Number: None

PATIENT
  Age: 60 Year
  Sex: Female

DRUGS (6)
  1. OMEGA 3-6-9 [Concomitant]
     Active Substance: FISH OIL
  2. VITAMIN C [Concomitant]
     Active Substance: ASCORBIC ACID
  3. CALCIUM [Concomitant]
     Active Substance: CALCIUM
  4. XGEVA [Concomitant]
     Active Substance: DENOSUMAB
  5. FASLODEX [Concomitant]
     Active Substance: FULVESTRANT
  6. IBRANCE [Suspect]
     Active Substance: PALBOCICLIB
     Indication: BREAST CANCER FEMALE
     Route: 048
     Dates: start: 20150728

REACTIONS (2)
  - Cerebrovascular accident [None]
  - Tremor [None]

NARRATIVE: CASE EVENT DATE: 20150820
